FAERS Safety Report 18544064 (Version 1)
Quarter: 2020Q4

REPORT INFORMATION
  Report Type: Spontaneous
  Country: US (occurrence: US)
  Receive Date: 20201124
  Receipt Date: 20201124
  Transmission Date: 20210114
  Serious: Yes (Hospitalization, Other)
  Sender: FDA-Public Use
  Company Number: US-ABBVIE-20K-163-3652627-00

PATIENT
  Age: 70 Year
  Sex: Male
  Weight: 73 kg

DRUGS (3)
  1. LEVOXYL [Suspect]
     Active Substance: LEVOTHYROXINE SODIUM
     Indication: PRODUCT USED FOR UNKNOWN INDICATION
     Route: 065
  2. ASPIRIN. [Concomitant]
     Active Substance: ASPIRIN
     Indication: PRODUCT USED FOR UNKNOWN INDICATION
  3. SYNTHROID [Suspect]
     Active Substance: LEVOTHYROXINE SODIUM
     Indication: THYROID DISORDER
     Route: 048
     Dates: start: 2006

REACTIONS (11)
  - Staphylococcal infection [Unknown]
  - Postoperative wound complication [Unknown]
  - Heart rate increased [Unknown]
  - Hip arthroplasty [Unknown]
  - Coronary arterial stent insertion [Unknown]
  - Somnolence [Unknown]
  - Unevaluable event [Unknown]
  - Joint dislocation [Unknown]
  - Stress [Unknown]
  - Post procedural complication [Unknown]
  - Confusional state [Unknown]

NARRATIVE: CASE EVENT DATE: 200612
